FAERS Safety Report 7223256-9 (Version None)
Quarter: 2011Q1

REPORT INFORMATION
  Report Type: 
  Country: None (occurrence: None)
  Receive Date: 20110112
  Receipt Date: 20100322
  Transmission Date: 20110831
  Serious: No
  Sender: FDA-Public Use
  Company Number: US-ALLERGAN-1003797US

PATIENT
  Age: 53 Year
  Sex: Female
  Weight: 74.83 kg

DRUGS (5)
  1. FLEXERIL [Concomitant]
     Indication: RHEUMATOID ARTHRITIS
     Dosage: ONCE A DAY
  2. GLUCOPHAGE [Concomitant]
     Indication: DIABETES MELLITUS
     Dosage: 2 X A DAY
  3. RESTASIS [Suspect]
     Indication: DRY EYE
     Dosage: 1 GTT, TID
     Route: 047
     Dates: start: 20100101
  4. EVOXAC [Concomitant]
     Indication: SJOGREN'S SYNDROME
     Dosage: 2-3 TIMES A DAY
  5. GENTEAL [Concomitant]

REACTIONS (1)
  - EYE IRRITATION [None]
